FAERS Safety Report 7730455-6 (Version None)
Quarter: 2011Q3

REPORT INFORMATION
  Report Type: 
  Country: None (occurrence: None)
  Receive Date: 20110906
  Receipt Date: 20110830
  Transmission Date: 20111222
  Serious: Yes (Hospitalization)
  Sender: FDA-Public Use
  Company Number: US-BAYER-2011-079018

PATIENT
  Age: 62 Year
  Sex: Female
  Weight: 57.6 kg

DRUGS (6)
  1. ANTINEOPLASTIC AGENTS [Suspect]
     Indication: MALIGNANT MELANOMA
     Dosage: CYCLE 1: 10 MG/KG, QD
     Route: 042
     Dates: start: 20110630
  2. ANTINEOPLASTIC AGENTS [Suspect]
     Dosage: CYCLE 2: 10 MG/KG, QD
     Route: 042
     Dates: start: 20110721
  3. ANTINEOPLASTIC AGENTS [Suspect]
     Dosage: CYCLE 3: 10 MG/KG, QD
     Route: 042
     Dates: start: 20110811
  4. SARGRAMOSTIM [Suspect]
     Indication: MALIGNANT MELANOMA
     Dosage: CYCLE 1: 250 ?G, QD
     Route: 058
     Dates: start: 20110630
  5. SARGRAMOSTIM [Suspect]
     Dosage: CYCLE 2: 250 ?G, QD
     Route: 058
  6. SARGRAMOSTIM [Suspect]
     Dosage: CYCLE 3: 250 ?G, QD
     Route: 058
     Dates: start: 20110811, end: 20110824

REACTIONS (1)
  - PULMONARY EMBOLISM [None]
